FAERS Safety Report 8309245-1 (Version None)
Quarter: 2012Q2

REPORT INFORMATION
  Report Type: 
  Country: None (occurrence: None)
  Receive Date: 20120424
  Receipt Date: 20120406
  Transmission Date: 20120825
  Serious: Yes (Hospitalization)
  Sender: FDA-Public Use
  Company Number: ES-AMGEN-ESPCT2011069553

PATIENT
  Age: 45 Year
  Sex: Female
  Weight: 53 kg

DRUGS (8)
  1. CALCIUM [Concomitant]
     Route: 048
     Dates: start: 20101209
  2. BLINDED PLACEBO [Suspect]
     Indication: BREAST CANCER
     Dosage: UNK
     Route: 058
     Dates: start: 20101209
  3. BLINDED DENOSUMAB [Suspect]
     Indication: BREAST CANCER
     Dosage: UNK
     Route: 058
     Dates: start: 20101209
  4. FILGRASTINE [Concomitant]
     Route: 058
     Dates: start: 20101209
  5. ACETAMINOPHEN [Concomitant]
     Route: 048
     Dates: start: 20110330
  6. VITAMIN D [Concomitant]
     Route: 048
     Dates: start: 20101209
  7. TAMOXIFEN CITRATE [Concomitant]
     Dosage: 20 MG, QD
     Route: 048
     Dates: start: 20110426
  8. PIRIDOXINA [Concomitant]
     Route: 048
     Dates: start: 20110330

REACTIONS (1)
  - CELLULITIS STAPHYLOCOCCAL [None]
